FAERS Safety Report 9191304 (Version 1)
Quarter: 2013Q1

REPORT INFORMATION
  Report Type: Spontaneous
  Country: US (occurrence: US)
  Receive Date: 20130326
  Receipt Date: 20130326
  Transmission Date: 20140127
  Serious: Yes (Other)
  Sender: FDA-Public Use
  Company Number: US-PFIZER INC-2013096405

PATIENT
  Age: 39 Year
  Sex: Female
  Weight: 72.56 kg

DRUGS (4)
  1. LYRICA [Suspect]
     Indication: FIBROMYALGIA
     Dosage: 75 MG, 3X/DAY
  2. DURAGESIC [Suspect]
     Indication: FIBROMYALGIA
     Dosage: 75 UG, EVERY 3 DAYS
     Route: 062
  3. VICODIN [Suspect]
     Indication: FIBROMYALGIA
     Dosage: 7.5/750 MG,3X/DAY
  4. BACLOFEN [Suspect]
     Indication: FIBROMYALGIA
     Dosage: 10 MG, 1X/DAY AT NIGHT

REACTIONS (2)
  - Systemic lupus erythematosus [Unknown]
  - Fibromyalgia [Unknown]
